FAERS Safety Report 7959450-9 (Version None)
Quarter: 2011Q4

REPORT INFORMATION
  Report Type: 
  Country: None (occurrence: None)
  Receive Date: 20111206
  Receipt Date: 20111202
  Transmission Date: 20120403
  Serious: No
  Sender: FDA-Public Use
  Company Number: US-PFIZER INC-2011295068

PATIENT
  Sex: Male
  Weight: 127 kg

DRUGS (6)
  1. PROCARDIA XL [Suspect]
     Dosage: 60 MG, 1X/DAY
     Route: 048
     Dates: start: 20111129
  2. PROCARDIA XL [Suspect]
     Dosage: 30 MG, DAILY
     Route: 048
     Dates: start: 20110101
  3. DILTIAZEM HCL [Suspect]
     Indication: HYPERTENSION
     Dosage: UNK
     Dates: start: 20111129, end: 20110101
  4. CARDIZEM [Suspect]
     Indication: HYPERTENSION
     Dosage: UNK
     Dates: start: 20111202, end: 20111202
  5. PROCARDIA XL [Suspect]
     Indication: HYPERTENSION
     Dosage: 60 MG, DAILY
     Route: 048
     Dates: start: 19900101
  6. PROCARDIA XL [Suspect]
     Dosage: 30 MG, 2X/DAY
     Route: 048

REACTIONS (6)
  - DRUG INEFFECTIVE [None]
  - HYPOAESTHESIA [None]
  - SOMNOLENCE [None]
  - CIRCUMSTANCE OR INFORMATION CAPABLE OF LEADING TO MEDICATION ERROR [None]
  - HEADACHE [None]
  - EXPIRED DRUG ADMINISTERED [None]
